FAERS Safety Report 20899815 (Version 3)
Quarter: 2022Q2

REPORT INFORMATION
  Report Type: Report from Study
  Country: GB (occurrence: GB)
  Receive Date: 20220601
  Receipt Date: 20220622
  Transmission Date: 20220720
  Serious: Yes (Hospitalization, Other)
  Sender: FDA-Public Use
  Company Number: US-BAYER-200931856GPV

PATIENT
  Age: 63 Year
  Sex: Female

DRUGS (18)
  1. IRBESARTAN [Suspect]
     Active Substance: IRBESARTAN
     Indication: Product used for unknown indication
     Dosage: UNK
     Route: 065
  2. IRBESARTAN [Suspect]
     Active Substance: IRBESARTAN
     Dosage: UNK
     Route: 065
  3. GLIPIZIDE [Suspect]
     Active Substance: GLIPIZIDE
     Indication: Product used for unknown indication
     Dosage: UNK
     Route: 065
  4. CARBOPLATIN [Suspect]
     Active Substance: CARBOPLATIN
     Indication: Ovarian cancer
     Dosage: 1 DOSE, Q3W ((5 AUC (AREA UNDER CURVE) EVERY 21 DAYS))
     Route: 042
     Dates: start: 20090708
  5. CARBOPLATIN [Suspect]
     Active Substance: CARBOPLATIN
     Dosage: 1 DOSAGE FORM, Q2W (Q3W ((5 AUC (AREA UNDER CURVE) EVERY 21 DAYS))
     Route: 042
     Dates: start: 20090708
  6. PACLITAXEL [Suspect]
     Active Substance: PACLITAXEL
     Indication: Ovarian cancer
     Dosage: 175 MILLIGRAM/SQ. METER, Q3W (175 MG/M2 EVERY 21 DAYS)
     Route: 042
     Dates: start: 20090617
  7. PACLITAXEL [Suspect]
     Active Substance: PACLITAXEL
     Dosage: 175 MILLIGRAM/SQ. METER, Q2W (Q3W (175 MG/M2 EVERY 21 DAYS)
     Route: 042
     Dates: start: 20090617
  8. ATIVAN [Suspect]
     Active Substance: LORAZEPAM
     Indication: Product used for unknown indication
     Dosage: UNK
     Route: 065
  9. AVANDAMET [Suspect]
     Active Substance: METFORMIN HYDROCHLORIDE\ROSIGLITAZONE MALEATE
     Indication: Product used for unknown indication
     Dosage: UNK
     Route: 065
  10. ALEVE [Suspect]
     Active Substance: NAPROXEN SODIUM
     Indication: Product used for unknown indication
     Dosage: UNK
     Route: 065
  11. BEVACIZUMAB [Suspect]
     Active Substance: BEVACIZUMAB
     Indication: Ovarian cancer
     Dosage: 15 MILLIGRAM/KILOGRAM, Q3W (15 MG/KG EVERY 21 DAYS)
     Route: 042
     Dates: start: 20090617
  12. BEVACIZUMAB [Suspect]
     Active Substance: BEVACIZUMAB
     Dosage: 15 MILLIGRAM/KILOGRAM, Q2W (Q3W (15 MG/KG EVERY 21 DAYS)
     Route: 042
     Dates: start: 20090617
  13. COUMADIN [Suspect]
     Active Substance: WARFARIN SODIUM
     Indication: Product used for unknown indication
     Dosage: UNK
     Route: 065
  14. LEVOCARNITINE [Suspect]
     Active Substance: LEVOCARNITINE
     Indication: Product used for unknown indication
     Dosage: UNK
     Route: 065
  15. LIPITOR [Suspect]
     Active Substance: ATORVASTATIN CALCIUM
     Indication: Product used for unknown indication
     Dosage: UNK
     Route: 065
  16. MAGNESIUM OXIDE [Suspect]
     Active Substance: MAGNESIUM OXIDE
     Indication: Product used for unknown indication
     Dosage: UNK
     Route: 065
  17. OXYCONTIN [Suspect]
     Active Substance: OXYCODONE HYDROCHLORIDE
     Indication: Product used for unknown indication
     Dosage: UNK
     Route: 065
  18. AVALIDE [Suspect]
     Active Substance: HYDROCHLOROTHIAZIDE\IRBESARTAN
     Indication: Product used for unknown indication
     Dosage: UNK
     Route: 065

REACTIONS (4)
  - Rectal haemorrhage [Recovered/Resolved]
  - Dyspnoea [Recovered/Resolved]
  - Fatigue [Recovered/Resolved]
  - Febrile neutropenia [Recovered/Resolved]

NARRATIVE: CASE EVENT DATE: 20090802
